FAERS Safety Report 7581269-1 (Version None)
Quarter: 2011Q2

REPORT INFORMATION
  Report Type: 
  Country: None (occurrence: None)
  Receive Date: 20110629
  Receipt Date: 20110622
  Transmission Date: 20111010
  Serious: Yes (Death)
  Sender: FDA-Public Use
  Company Number: US-CELGENEUS-163-21880-11060376

PATIENT
  Sex: Male

DRUGS (23)
  1. REVLIMID [Suspect]
     Indication: MYELODYSPLASTIC SYNDROME
     Dosage: 10 MILLIGRAM
     Route: 048
     Dates: start: 20110415, end: 20110505
  2. REVLIMID [Suspect]
     Dosage: 10 MILLIGRAM
     Route: 048
     Dates: start: 20110513
  3. DOXIN [Concomitant]
     Dosage: .125 MILLIGRAM
     Route: 048
  4. COUMADIN [Concomitant]
     Dosage: 3.7 MILLIGRAM
     Route: 065
     Dates: start: 20110514
  5. CLONAZEPAM [Concomitant]
     Dosage: A? TAB
     Route: 048
  6. ALLOPURINOL [Concomitant]
     Dosage: 300 MILLIGRAM
     Route: 048
  7. BISOPROLOL FUMARATE [Concomitant]
     Dosage: 5 MILLIGRAM
     Route: 048
  8. COUMADIN [Concomitant]
     Dosage: 5 MILLIGRAM
     Route: 065
     Dates: start: 20110514
  9. DILTIAZEM [Concomitant]
     Dosage: 120 MILLIGRAM
     Route: 065
  10. PREDNISONE [Concomitant]
     Dosage: 10 MILLIGRAM
     Route: 048
  11. OMEPRAZOLE [Concomitant]
     Dosage: 20 MILLIGRAM
     Route: 048
  12. DOXYCYCLINE [Concomitant]
     Dosage: 100 MILLIGRAM
     Route: 065
     Dates: start: 20110513
  13. CARBIDOPA AND LEVODOPA [Concomitant]
     Indication: PARKINSON'S DISEASE
     Dosage: 25 MG /100 MG
     Route: 048
  14. FERROUS SULFATE TAB [Concomitant]
     Dosage: 325 MILLIGRAM
     Route: 048
  15. POTASSIUM CL [Concomitant]
     Dosage: 20 MILLIEQUIVALENTS
     Route: 048
  16. NITROGLYCERIN [Concomitant]
     Dosage: .2 MILLIGRAM
     Route: 062
  17. ASMANEX TWISTHALER [Concomitant]
     Dosage: 220 MICROGRAM
     Route: 055
  18. ALBUTEROL [Concomitant]
     Dosage: 90 MICROGRAM
     Route: 055
  19. OXYGEN [Concomitant]
     Route: 065
     Dates: start: 20110516
  20. PREDNISONE [Concomitant]
     Dosage: 20 MILLIGRAM
     Route: 048
  21. FUROSEMIDE [Concomitant]
     Dosage: 20 MILLIGRAM
     Route: 048
  22. ZOCOR [Concomitant]
     Dosage: 40 MILLIGRAM
     Route: 065
  23. HYDROCODONE [Concomitant]
     Dosage: 5-500 MG
     Route: 065

REACTIONS (1)
  - MYOCARDIAL INFARCTION [None]
